FAERS Safety Report 25419373 (Version 1)
Quarter: 2025Q2

REPORT INFORMATION
  Report Type: Spontaneous
  Country: TW (occurrence: TW)
  Receive Date: 20250610
  Receipt Date: 20250610
  Transmission Date: 20250717
  Serious: Yes (Hospitalization)
  Sender: ALEXION PHARMACEUTICALS
  Company Number: TW-ASTRAZENECA-202506ASI002732TW

PATIENT
  Age: 78 Year
  Weight: 63.2 kg

DRUGS (7)
  1. IMFINZI [Suspect]
     Active Substance: DURVALUMAB
     Indication: Small cell carcinoma
  2. IMFINZI [Suspect]
     Active Substance: DURVALUMAB
  3. ETOPOSIDE [Suspect]
     Active Substance: ETOPOSIDE
     Indication: Small cell carcinoma
  4. ETOPOSIDE [Suspect]
     Active Substance: ETOPOSIDE
  5. ETOPOSIDE [Suspect]
     Active Substance: ETOPOSIDE
     Dosage: 140 MILLIGRAM, QD
  6. CARBOPLATIN [Suspect]
     Active Substance: CARBOPLATIN
     Indication: Small cell carcinoma
  7. CARBOPLATIN [Suspect]
     Active Substance: CARBOPLATIN

REACTIONS (1)
  - Leukopenia [Not Recovered/Not Resolved]
